FAERS Safety Report 11164323 (Version 1)
Quarter: 2015Q2

REPORT INFORMATION
  Report Type: Spontaneous
  Country: US (occurrence: US)
  Receive Date: 20150604
  Receipt Date: 20150604
  Transmission Date: 20150821
  Serious: Yes (Life-Threatening, Hospitalization, Other)
  Sender: FDA-Public Use
  Company Number: US-SUN PHARMACEUTICAL INDUSTRIES LTD-2015US-98397

PATIENT
  Age: 25 Year
  Sex: Male

DRUGS (4)
  1. SEVOFLURANE. [Concomitant]
     Active Substance: SEVOFLURANE
     Indication: PRODUCT USED FOR UNKNOWN INDICATION
     Route: 065
  2. METHYLENE BLUE. [Interacting]
     Active Substance: METHYLENE BLUE
     Indication: IMAGING PROCEDURE
     Dosage: 2 DF UNIT
     Route: 042
  3. FLUOXETINE [Suspect]
     Active Substance: FLUOXETINE\FLUOXETINE HYDROCHLORIDE
     Indication: PRODUCT USED FOR UNKNOWN INDICATION
     Dosage: 80 MG, DAILY
     Route: 065
  4. HALOPERIDOL. [Concomitant]
     Active Substance: HALOPERIDOL
     Indication: NEUROLOGICAL SYMPTOM
     Route: 065

REACTIONS (5)
  - Drug interaction [Unknown]
  - Pseudomonas infection [Unknown]
  - Sepsis [Unknown]
  - Appendicitis perforated [Unknown]
  - Serotonin syndrome [Recovering/Resolving]
